FAERS Safety Report 7626521-6 (Version None)
Quarter: 2011Q3

REPORT INFORMATION
  Report Type: 
  Country: None (occurrence: None)
  Receive Date: 20110721
  Receipt Date: 20110711
  Transmission Date: 20111222
  Serious: Yes (Life-Threatening)
  Sender: FDA-Public Use
  Company Number: FR-ROCHE-789279

PATIENT
  Sex: Female

DRUGS (6)
  1. SECTRAL [Concomitant]
  2. ATORVASTATIN CALCIUM [Concomitant]
  3. FEMARA [Concomitant]
  4. KARDEGIC [Concomitant]
  5. AVASTIN [Suspect]
     Route: 042
     Dates: start: 20110420, end: 20110531
  6. TAXOL [Suspect]
     Route: 042
     Dates: start: 20110420, end: 20110531

REACTIONS (2)
  - ACUTE PULMONARY OEDEMA [None]
  - CONGESTIVE CARDIOMYOPATHY [None]
